FAERS Safety Report 12278409 (Version 2)
Quarter: 2016Q2

REPORT INFORMATION
  Report Type: Report from Study
  Country: BR (occurrence: BR)
  Receive Date: 20160418
  Receipt Date: 20160421
  Transmission Date: 20160815
  Serious: Yes (Life-Threatening, Other)
  Sender: FDA-Public Use
  Company Number: BR-JNJFOC-20160414115

PATIENT
  Sex: Female

DRUGS (1)
  1. REMICADE [Suspect]
     Active Substance: INFLIXIMAB
     Indication: CROHN^S DISEASE
     Route: 042
     Dates: start: 2015, end: 2015

REACTIONS (7)
  - Headache [Unknown]
  - Dyspnoea [Unknown]
  - Erythema [Unknown]
  - Fear of death [Unknown]
  - Infusion related reaction [Unknown]
  - Pruritus [Unknown]
  - Formication [Unknown]

NARRATIVE: CASE EVENT DATE: 2015
